FAERS Safety Report 19202727 (Version 1)
Quarter: 2021Q2

REPORT INFORMATION
  Report Type: Report from Study
  Country: EC (occurrence: EC)
  Receive Date: 20210502
  Receipt Date: 20210502
  Transmission Date: 20210717
  Serious: Yes (Death)
  Sender: FDA-Public Use
  Company Number: NVSC2021EC097588

PATIENT
  Age: 67 Year
  Sex: Female

DRUGS (10)
  1. TASIGNA [Suspect]
     Active Substance: NILOTINIB
     Dosage: 700 MG (800 MG IN ONE DAY AND 600 MG NEXT DAY)
     Route: 048
     Dates: start: 20150623, end: 20170129
  2. TASIGNA [Suspect]
     Active Substance: NILOTINIB
     Dosage: 600 MG (400 MG IN MORNING AND 200 MG IN THE NIGHT)
     Route: 048
     Dates: start: 20170130, end: 20180305
  3. TASIGNA [Suspect]
     Active Substance: NILOTINIB
     Dosage: 600 MG (400 MG IN MORNING AND 200 MG IN THE NIGHT)
     Route: 048
     Dates: start: 20200107, end: 20200706
  4. TASIGNA [Suspect]
     Active Substance: NILOTINIB
     Dosage: 200 MG, BID
     Route: 048
     Dates: start: 20200929
  5. TASIGNA [Suspect]
     Active Substance: NILOTINIB
     Indication: CHRONIC MYELOID LEUKAEMIA
     Dosage: 600 MG (400 MG IN MORNING AND 200 MG IN THE NIGHT)
     Route: 048
     Dates: start: 20150521, end: 20150622
  6. TASIGNA [Suspect]
     Active Substance: NILOTINIB
     Dosage: 400 MG, BID
     Route: 048
     Dates: start: 20181129, end: 20190226
  7. TASIGNA [Suspect]
     Active Substance: NILOTINIB
     Dosage: 600 MG (400 MG IN MORNING AND 200 MG IN THE NIGHT)
     Route: 048
     Dates: start: 20180925, end: 20181123
  8. TASIGNA [Suspect]
     Active Substance: NILOTINIB
     Dosage: 200 MG, BID
     Route: 048
     Dates: start: 20190227, end: 20190528
  9. TASIGNA [Suspect]
     Active Substance: NILOTINIB
     Dosage: 400 MG, BID
     Route: 048
     Dates: start: 20190529, end: 20190803
  10. TASIGNA [Suspect]
     Active Substance: NILOTINIB
     Dosage: 400 MG, BID
     Route: 048
     Dates: start: 20180424, end: 20180924

REACTIONS (2)
  - Death [Fatal]
  - Inappropriate schedule of product administration [Unknown]

NARRATIVE: CASE EVENT DATE: 20210427
